FAERS Safety Report 7109960-1 (Version None)
Quarter: 2010Q4

REPORT INFORMATION
  Report Type: 
  Country: None (occurrence: None)
  Receive Date: 20101118
  Receipt Date: 20101111
  Transmission Date: 20110411
  Serious: Yes (Other)
  Sender: FDA-Public Use
  Company Number: ES-TYCO HEALTHCARE/MALLINCKRODT-T201002250

PATIENT
  Age: 29 Year
  Sex: Male

DRUGS (2)
  1. TECHNESCAN [Suspect]
     Indication: RADIOISOTOPE SCAN
     Dosage: UNK
     Route: 042
     Dates: start: 20091103, end: 20091103
  2. ULTRA-TECHNEKOW FM [Suspect]
     Indication: RADIOISOTOPE SCAN
     Dosage: UNK
     Route: 042
     Dates: start: 20091103, end: 20091103

REACTIONS (3)
  - BACK PAIN [None]
  - DYSPNOEA [None]
  - SENSATION OF FOREIGN BODY [None]
